FAERS Safety Report 4289080-4 (Version None)
Quarter: 2004Q1

REPORT INFORMATION
  Report Type: 
  Country: None (occurrence: None)
  Receive Date: 20040130
  Receipt Date: 20030930
  Transmission Date: 20041129
  Serious: No
  Sender: FDA-Public Use
  Company Number: WAES0310USA00036

PATIENT
  Age: 47 Year
  Sex: Female
  Weight: 83.9154 kg

DRUGS (9)
  1. EMEND [Suspect]
     Indication: CHEMOTHERAPY
     Dosage: 125 MG/1X/PO
     Route: 048
     Dates: start: 20030728, end: 20030728
  2. EMEND [Suspect]
     Indication: PROPHYLAXIS
     Dosage: 125 MG/1X/PO
     Route: 048
     Dates: start: 20030728, end: 20030728
  3. ANZEMET [Concomitant]
  4. DECADRON [Concomitant]
  5. DECARDRON TABLETS [Concomitant]
  6. NEULASTA [Concomitant]
  7. NORVASC [Concomitant]
  8. ANTINEOPLASTIC [Concomitant]
  9. LISINOPRIL [Concomitant]

REACTIONS (4)
  - CHILLS [None]
  - FATIGUE [None]
  - HEADACHE [None]
  - NAUSEA [None]
